FAERS Safety Report 6874375-8 (Version None)
Quarter: 2010Q3

REPORT INFORMATION
  Report Type: 
  Country: None (occurrence: None)
  Receive Date: 20100723
  Receipt Date: 20090715
  Transmission Date: 20110219
  Serious: Yes (Other)
  Sender: FDA-Public Use
  Company Number: US-PFIZER INC-2009205395

PATIENT
  Age: 41 Year
  Sex: Female
  Weight: 58.957 kg

DRUGS (1)
  1. CHANTIX [Suspect]
     Indication: SMOKING CESSATION THERAPY
     Dosage: UNK
     Route: 042
     Dates: start: 20071202, end: 20080202

REACTIONS (3)
  - ARTHRALGIA [None]
  - MOOD SWINGS [None]
  - WEIGHT INCREASED [None]
